FAERS Safety Report 4825296-3 (Version None)
Quarter: 2005Q4

REPORT INFORMATION
  Report Type: 
  Country: None (occurrence: None)
  Receive Date: 20051109
  Receipt Date: 20051027
  Transmission Date: 20060501
  Serious: Yes (Life-Threatening)
  Sender: FDA-Public Use
  Company Number: 2005149550

PATIENT
  Age: 75 Year
  Sex: Male

DRUGS (5)
  1. ZYVOX [Suspect]
     Indication: INFECTION
     Dosage: 1200 MG (600 MG, 2 IN 1 D), ORAL
     Route: 048
     Dates: start: 20050916, end: 20050922
  2. LANSOPRAZOLE [Concomitant]
  3. CASPOFUNGIN (CASPOFUNGIN) [Concomitant]
  4. MEROPENEM (MEROPENEM) [Concomitant]
  5. VANCOMYCIN [Concomitant]

REACTIONS (1)
  - NEPHRITIS INTERSTITIAL [None]
